FAERS Safety Report 4621553-4 (Version None)
Quarter: 2005Q1

REPORT INFORMATION
  Report Type: 
  Country: None (occurrence: None)
  Receive Date: 20050328
  Receipt Date: 20030317
  Transmission Date: 20050727
  Serious: Yes (Hospitalization)
  Sender: FDA-Public Use
  Company Number: 5513

PATIENT
  Age: 46 Year
  Sex: Female

DRUGS (4)
  1. MORPHINE SULFATE [Suspect]
     Indication: CANCER PAIN
     Dosage: 30 MG BID; PO
     Route: 048
     Dates: start: 20011201
  2. PAROXETINE HCL [Concomitant]
  3. ESTRADIOL [Concomitant]
  4. DIAZEPAM [Concomitant]

REACTIONS (1)
  - FAECALOMA [None]
